FAERS Safety Report 10193984 (Version 1)
Quarter: 2014Q2

REPORT INFORMATION
  Report Type: Spontaneous
  Country: US (occurrence: US)
  Receive Date: 20140524
  Receipt Date: 20140524
  Transmission Date: 20141212
  Serious: No
  Sender: FDA-Public Use
  Company Number: US-SANOFI-AVENTIS-2013SA074179

PATIENT
  Age: 67 Year
  Sex: Female

DRUGS (4)
  1. LANTUS SOLOSTAR [Suspect]
     Route: 051
  2. SOLOSTAR [Suspect]
  3. LANTUS [Suspect]
     Indication: DIABETES MELLITUS
     Dosage: TAKEN FROM- 2 YEARS DOSE:52 UNIT(S)
     Route: 051
  4. NOVOLOG [Concomitant]

REACTIONS (5)
  - Injection site swelling [Unknown]
  - Injection site erythema [Unknown]
  - Injection site pruritus [Unknown]
  - Injection site pain [Unknown]
  - Blood glucose decreased [Unknown]
